FAERS Safety Report 11697823 (Version 2)
Quarter: 2016Q2

REPORT INFORMATION
  Report Type: Report from Study
  Country: US (occurrence: US)
  Receive Date: 20151104
  Receipt Date: 20160421
  Transmission Date: 20160815
  Serious: Yes (Other)
  Sender: FDA-Public Use
  Company Number: US-JNJFOC-20151012603

PATIENT
  Sex: Female

DRUGS (8)
  1. DYMISTA [Concomitant]
     Active Substance: AZELASTINE HYDROCHLORIDE\FLUTICASONE PROPIONATE
  2. SIMVASTATIN. [Concomitant]
     Active Substance: SIMVASTATIN
  3. FLECAINIDE [Concomitant]
     Active Substance: FLECAINIDE
  4. IMBRUVICA [Suspect]
     Active Substance: IBRUTINIB
     Indication: CHRONIC LYMPHOCYTIC LEUKAEMIA
     Route: 065
     Dates: start: 20140115
  5. ASPIRIN. [Concomitant]
     Active Substance: ASPIRIN
  6. METOPROLOL. [Concomitant]
     Active Substance: METOPROLOL
  7. METOPROLOL SUCCINATE. [Concomitant]
     Active Substance: METOPROLOL SUCCINATE
  8. FOLIC ACID. [Concomitant]
     Active Substance: FOLIC ACID

REACTIONS (4)
  - Uveitis [Not Recovered/Not Resolved]
  - Vitreous floaters [Unknown]
  - Eye haemorrhage [Unknown]
  - Visual impairment [Recovered/Resolved]
